FAERS Safety Report 5045877-4 (Version None)
Quarter: 2006Q2

REPORT INFORMATION
  Report Type: 
  Country: None (occurrence: None)
  Receive Date: 20060629
  Receipt Date: 20060619
  Transmission Date: 20061013
  Serious: Yes (Other)
  Sender: FDA-Public Use
  Company Number: 2006065411

PATIENT
  Age: 67 Year
  Sex: Male
  Weight: 103.4201 kg

DRUGS (5)
  1. LIPITOR [Suspect]
     Indication: BLOOD CHOLESTEROL INCREASED
     Dosage: 20 MG (20 MG, 1 IN 1D), ORAL
     Route: 048
     Dates: start: 19990201
  2. LYRICA [Suspect]
     Indication: NEUROPATHY PERIPHERAL
     Dosage: 75 MG (75 MG, 1 IN 1 D), UNKNOWN
     Dates: start: 20060401
  3. DRUG, UNSPECIFIED (DRUG, UNSPECIFIED) [Suspect]
     Indication: ILL-DEFINED DISORDER
  4. CENTRUM (IMNERALSNOS, VITAMINS NOS) [Concomitant]
  5. ASPIRIN [Concomitant]

REACTIONS (8)
  - BLOOD CHOLESTEROL INCREASED [None]
  - CARDIAC ARREST [None]
  - ELECTROMECHANICAL DISSOCIATION [None]
  - MALAISE [None]
  - NASOPHARYNGITIS [None]
  - NEUROPATHY PERIPHERAL [None]
  - SLEEP APNOEA SYNDROME [None]
  - TREATMENT NONCOMPLIANCE [None]
